FAERS Safety Report 22104629 (Version 4)
Quarter: 2023Q2

REPORT INFORMATION
  Report Type: Report from Study
  Country: JP (occurrence: JP)
  Receive Date: 20230316
  Receipt Date: 20230621
  Transmission Date: 20230722
  Serious: Yes (Death, Other)
  Sender: FDA-Public Use
  Company Number: JP-PFIZER INC-PV202300049275

PATIENT
  Age: 78 Year
  Sex: Male
  Weight: 46 kg

DRUGS (9)
  1. VYNDAQEL [Suspect]
     Active Substance: TAFAMIDIS MEGLUMINE
     Indication: Cardiac amyloidosis
     Dosage: 80 MG, 1X/DAY
     Route: 048
     Dates: start: 20210201, end: 20210827
  2. RAMOSETRON HYDROCHLORIDE [Concomitant]
     Active Substance: RAMOSETRON HYDROCHLORIDE
     Dosage: UNK
     Route: 048
     Dates: end: 20210827
  3. ALBUMIN TANNATE [Concomitant]
     Active Substance: ALBUMIN TANNATE
     Dosage: UNK
     Route: 048
     Dates: end: 20210827
  4. ALUMINUM SILICATE [Concomitant]
     Active Substance: ALUMINUM SILICATE
     Dosage: UNK
     Route: 048
     Dates: end: 20210827
  5. LUNESTA [Concomitant]
     Active Substance: ESZOPICLONE
     Dosage: UNK
     Route: 048
     Dates: end: 20210827
  6. ENALAPRIL [Concomitant]
     Active Substance: ENALAPRIL
     Indication: Cardiac amyloidosis
     Dosage: UNK
     Route: 048
     Dates: end: 20210827
  7. BISOPROLOL FUMARATE [Concomitant]
     Active Substance: BISOPROLOL FUMARATE
     Dosage: UNK
     Route: 048
     Dates: end: 20210827
  8. AZOSEMIDE [Concomitant]
     Active Substance: AZOSEMIDE
     Dosage: UNK
     Route: 048
     Dates: end: 20210827
  9. SAMSCA [Concomitant]
     Active Substance: TOLVAPTAN
     Dosage: UNK
     Route: 048
     Dates: end: 20210827

REACTIONS (1)
  - Death [Fatal]

NARRATIVE: CASE EVENT DATE: 20210101
